FAERS Safety Report 17527226 (Version 4)
Quarter: 2021Q1

REPORT INFORMATION
  Report Type: Spontaneous
  Country: US (occurrence: US)
  Receive Date: 20200311
  Receipt Date: 20210316
  Transmission Date: 20210419
  Serious: No
  Sender: FDA-Public Use
  Company Number: US-PFIZER INC-2020105888

PATIENT
  Age: 29 Year
  Sex: Female
  Weight: 82.54 kg

DRUGS (1)
  1. CELEBREX [Suspect]
     Active Substance: CELECOXIB
     Dosage: 200 MG, 2X/DAY (QUANTITY FOR 90 DAYS:? 360)
     Route: 048

REACTIONS (1)
  - Visual impairment [Unknown]
